FAERS Safety Report 10305616 (Version 1)
Quarter: 2014Q3

REPORT INFORMATION
  Report Type: Spontaneous
  Country: US (occurrence: None)
  Receive Date: 20140714
  Receipt Date: 20140714
  Transmission Date: 20150326
  Serious: Yes (Hospitalization)
  Sender: FDA-Public Use
  Company Number: None

PATIENT
  Age: 83 Year
  Sex: Female
  Weight: 53 kg

DRUGS (10)
  1. SINEMET [Concomitant]
     Active Substance: CARBIDOPA\LEVODOPA
  2. XARELTO [Suspect]
     Active Substance: RIVAROXABAN
     Indication: DEEP VEIN THROMBOSIS
     Dates: start: 201303
  3. CYANOCOBALAMIN. [Concomitant]
     Active Substance: CYANOCOBALAMIN
  4. LISINOPRIL (PRINIVIL; ZESTRIL) [Concomitant]
     Active Substance: LISINOPRIL
  5. ENTACAPONE. [Concomitant]
     Active Substance: ENTACAPONE
  6. XARELTO [Suspect]
     Active Substance: RIVAROXABAN
     Indication: ATRIAL FIBRILLATION
     Dates: start: 201303
  7. CORDARONE [Concomitant]
     Active Substance: AMIODARONE HYDROCHLORIDE
  8. SYNTHROID [Concomitant]
     Active Substance: LEVOTHYROXINE SODIUM
  9. ASPIRIN. [Concomitant]
     Active Substance: ASPIRIN
  10. POTASSIUM CHLORIDE. [Concomitant]
     Active Substance: POTASSIUM CHLORIDE

REACTIONS (12)
  - Duodenitis [None]
  - Abdominal pain [None]
  - Haemodynamic instability [None]
  - Melaena [None]
  - Colitis ischaemic [None]
  - Incontinence [None]
  - Sepsis [None]
  - Hypotension [None]
  - Oesophageal candidiasis [None]
  - Atrial fibrillation [None]
  - Mental status changes [None]
  - Hypovolaemia [None]

NARRATIVE: CASE EVENT DATE: 20140624
